FAERS Safety Report 5975135-2 (Version None)
Quarter: 2008Q4

REPORT INFORMATION
  Report Type: 
  Country: None (occurrence: None)
  Receive Date: 20081202
  Receipt Date: 20081124
  Transmission Date: 20090506
  Serious: Yes (Hospitalization)
  Sender: FDA-Public Use
  Company Number: CA-BAYER-200836630NA

PATIENT
  Age: 77 Year
  Sex: Male
  Weight: 85 kg

DRUGS (6)
  1. SORAFENIB [Suspect]
     Indication: ACUTE MYELOID LEUKAEMIA
     Dosage: TOTAL DAILY DOSE: 600 MG  UNIT DOSE: 200 MG
     Route: 048
     Dates: start: 20080930, end: 20081021
  2. ARA-C [Suspect]
     Indication: ACUTE MYELOID LEUKAEMIA
     Dosage: TOTAL DAILY DOSE: 20 MG
     Route: 058
     Dates: start: 20081001, end: 20081009
  3. NORVASC [Concomitant]
     Indication: HYPERTENSION
  4. CALCIUM / VITAMIN D [Concomitant]
     Indication: OSTEOPOROSIS
  5. CODEINE SUL TAB [Concomitant]
     Indication: ARTHRALGIA
     Dates: start: 20080930
  6. IMOVANE [Concomitant]
     Indication: INSOMNIA
     Dates: start: 20081007

REACTIONS (8)
  - DIARRHOEA [None]
  - EPISTAXIS [None]
  - FATIGUE [None]
  - LOCALISED OEDEMA [None]
  - MUSCULAR WEAKNESS [None]
  - OEDEMA PERIPHERAL [None]
  - PULMONARY HAEMORRHAGE [None]
  - URINARY INCONTINENCE [None]
